FAERS Safety Report 4774718-5 (Version None)
Quarter: 2005Q3

REPORT INFORMATION
  Report Type: 
  Country: None (occurrence: None)
  Receive Date: 20050921
  Receipt Date: 20050915
  Transmission Date: 20060218
  Serious: Yes (Other)
  Sender: FDA-Public Use
  Company Number: CA-GLAXOSMITHKLINE-A0574894A

PATIENT
  Age: 39 Year
  Sex: Male

DRUGS (4)
  1. ZYBAN [Suspect]
     Indication: DRUG USE FOR UNKNOWN INDICATION
     Dosage: 150MG UNKNOWN
  2. ASPIRIN [Concomitant]
  3. AVAPRO [Concomitant]
  4. ROSASOL [Concomitant]
     Route: 061

REACTIONS (4)
  - DYSPNOEA [None]
  - FACE OEDEMA [None]
  - FEELING HOT [None]
  - RASH ERYTHEMATOUS [None]
